FAERS Safety Report 25735807 (Version 3)
Quarter: 2025Q3

REPORT INFORMATION
  Report Type: Spontaneous
  Country: US (occurrence: US)
  Receive Date: 20250828
  Receipt Date: 20250929
  Transmission Date: 20251021
  Serious: Yes (Other)
  Sender: PFIZER
  Company Number: US-PFIZER INC-202500170065

PATIENT
  Age: 57 Year
  Sex: Female

DRUGS (3)
  1. IBRANCE [Suspect]
     Active Substance: PALBOCICLIB
     Indication: Breast cancer metastatic
     Route: 048
     Dates: start: 20250814
  2. ANASTROZOLE [Concomitant]
     Active Substance: ANASTROZOLE
  3. XARELTO [Concomitant]
     Active Substance: RIVAROXABAN

REACTIONS (24)
  - Pneumonia [Unknown]
  - Dizziness [Unknown]
  - Illness [Unknown]
  - Hot flush [Unknown]
  - Panic reaction [Unknown]
  - Fatigue [Unknown]
  - Nausea [Unknown]
  - Vomiting [Unknown]
  - Weight decreased [Not Recovered/Not Resolved]
  - Condition aggravated [Unknown]
  - Muscle atrophy [Not Recovered/Not Resolved]
  - Oral disorder [Unknown]
  - Decreased appetite [Unknown]
  - Abdominal discomfort [Unknown]
  - Diarrhoea [Unknown]
  - Pain [Unknown]
  - Insomnia [Unknown]
  - Menopausal symptoms [Recovering/Resolving]
  - Anxiety [Recovering/Resolving]
  - Gastrooesophageal reflux disease [Recovering/Resolving]
  - Nasopharyngitis [Recovering/Resolving]
  - Rhinorrhoea [Recovering/Resolving]
  - Dyspnoea [Recovering/Resolving]
  - Alopecia [Recovering/Resolving]

NARRATIVE: CASE EVENT DATE: 20250101
